FAERS Safety Report 16541930 (Version 1)
Quarter: 2019Q3

REPORT INFORMATION
  Report Type: Spontaneous
  Country: AU (occurrence: AU)
  Receive Date: 20190708
  Receipt Date: 20190708
  Transmission Date: 20191004
  Serious: Yes (Hospitalization, Other)
  Sender: FDA-Public Use
  Company Number: AU-MYLANLABS-2019M1063634

PATIENT
  Sex: Male

DRUGS (1)
  1. CLOZARIL [Suspect]
     Active Substance: CLOZAPINE
     Indication: SCHIZOPHRENIA
     Dosage: 300 MILLIGRAM
     Route: 048
     Dates: start: 20031015

REACTIONS (4)
  - Chronic kidney disease [Unknown]
  - Anaemia [Unknown]
  - Schizophrenia [Unknown]
  - Troponin increased [Unknown]

NARRATIVE: CASE EVENT DATE: 2019
